FAERS Safety Report 6638810-2 (Version None)
Quarter: 2010Q1

REPORT INFORMATION
  Report Type: 
  Country: None (occurrence: None)
  Receive Date: 20100317
  Receipt Date: 20100305
  Transmission Date: 20100710
  Serious: Yes (Other)
  Sender: FDA-Public Use
  Company Number: US-PFIZER INC-2010028972

PATIENT
  Sex: Female
  Weight: 79.36 kg

DRUGS (12)
  1. CHANTIX [Suspect]
     Dosage: 0.5 MG, 1X/DAY
     Route: 048
     Dates: start: 20100220
  2. CHANTIX [Suspect]
     Dosage: 1 MG, 2X/DAY
     Dates: end: 20100306
  3. VERAPAMIL [Concomitant]
     Dosage: 240 MG, 1X/DAY
  4. CARVEDILOL [Concomitant]
     Dosage: 150 MG, 2X/DAY
  5. ALPRAZOLAM [Concomitant]
     Dosage: 1 MG UP TO 3 TIMES A DAY IF NEEDED
  6. METFORMIN [Concomitant]
     Dosage: 500 MG, 1X/DAY
  7. CARISOPRODOL [Concomitant]
     Dosage: 350 MG, 2X/DAY
  8. ACETYLSALICYLIC ACID [Concomitant]
     Dosage: 81 MG, 1X/DAY
  9. MELATONIN [Concomitant]
     Dosage: 5 MG, 1X/DAY
  10. TYLENOL-500 [Concomitant]
     Dosage: 500 MG
  11. MULTI-VITAMINS [Concomitant]
  12. L-LYSINE [Concomitant]
     Dosage: 500 MG, 1X/DAY

REACTIONS (6)
  - FALL [None]
  - FOOT FRACTURE [None]
  - HYPERSENSITIVITY [None]
  - MUSCULAR WEAKNESS [None]
  - MYALGIA [None]
  - RASH MACULAR [None]
